FAERS Safety Report 8977199 (Version 1)
Quarter: 2012Q4

REPORT INFORMATION
  Report Type: 
  Country: MY (occurrence: MY)
  Receive Date: 20121219
  Receipt Date: 20121219
  Transmission Date: 20130627
  Serious: Yes (Hospitalization, Other)
  Sender: FDA-Public Use
  Company Number: PHHY2012MY114190

PATIENT
  Age: 34 Year
  Sex: Female

DRUGS (11)
  1. MYFORTIC [Suspect]
     Indication: RENAL TRANSPLANT
     Dosage: UNK UKN, UNK
  2. MYFORTIC [Suspect]
     Dosage: Dose was halved
  3. MYFORTIC [Suspect]
     Dosage: Stopped
  4. MYFORTIC [Suspect]
     Dosage: 180 mg, BID
  5. MYFORTIC [Suspect]
     Dosage: Stopped
  6. MYFORTIC [Suspect]
     Dosage: 180 mg, BID
  7. METHYLPREDNISOLONE [Concomitant]
     Indication: RENAL TRANSPLANT
     Dosage: UNK UKN, UNK
     Route: 042
  8. THYMOGLOBULIN [Concomitant]
     Indication: RENAL TRANSPLANT
     Route: 042
  9. TACROLIMUS [Concomitant]
     Indication: RENAL TRANSPLANT
     Dosage: UNK UKN, UNK
     Route: 048
  10. TACROLIMUS [Concomitant]
     Dosage: Dose reduced
  11. PREDNISOLONE [Concomitant]
     Indication: RENAL TRANSPLANT

REACTIONS (13)
  - Lung abscess [Recovered/Resolved]
  - Pulmonary mass [Unknown]
  - Pulmonary haemorrhage [Unknown]
  - Cough [Unknown]
  - Sputum purulent [Unknown]
  - Pyrexia [Unknown]
  - Tachypnoea [Unknown]
  - Rhodococcus infection [Recovered/Resolved]
  - Kidney transplant rejection [Unknown]
  - Tubulointerstitial nephritis [Unknown]
  - Renal hypertension [Unknown]
  - Renal impairment [Unknown]
  - Complications of transplanted kidney [Unknown]
